FAERS Safety Report 5117951-5 (Version None)
Quarter: 2006Q3

REPORT INFORMATION
  Report Type: 
  Country: None (occurrence: None)
  Receive Date: 20060926
  Receipt Date: 20060918
  Transmission Date: 20061208
  Serious: Yes (Other)
  Sender: FDA-Public Use
  Company Number: 2006112878

PATIENT
  Sex: Female

DRUGS (2)
  1. CADUET [Suspect]
     Dosage: ORAL
     Route: 048
  2. THYROID HORMONES [Concomitant]

REACTIONS (1)
  - HYPERTHYROIDISM [None]
